FAERS Safety Report 5371264-5 (Version None)
Quarter: 2007Q2

REPORT INFORMATION
  Report Type: 
  Country: None (occurrence: None)
  Receive Date: 20070615
  Receipt Date: 20070117
  Transmission Date: 20071010
  Serious: Yes (Other)
  Sender: FDA-Public Use
  Company Number: 200619175US

PATIENT
  Age: 61 Year
  Sex: Female
  Weight: 91 kg

DRUGS (7)
  1. LANTUS [Suspect]
     Indication: DIABETES MELLITUS NON-INSULIN-DEPENDENT
     Dosage: 30 U QAM
     Dates: start: 20050501, end: 20061106
  2. LANTUS [Suspect]
     Indication: DIABETES MELLITUS NON-INSULIN-DEPENDENT
     Dosage: 25 U QAM
     Dates: start: 20061108, end: 20061116
  3. NORVASC [Concomitant]
  4. CLONIDINE [Concomitant]
  5. URSODIOL [Concomitant]
  6. LASIX [Concomitant]
  7. PARACETAMOL [Concomitant]

REACTIONS (9)
  - ASTHENIA [None]
  - BLOOD GLUCOSE INCREASED [None]
  - DRUG INEFFECTIVE [None]
  - HYPOGLYCAEMIC COMA [None]
  - INJECTION SITE BRUISING [None]
  - INJECTION SITE PRURITUS [None]
  - INJECTION SITE RASH [None]
  - LOSS OF CONSCIOUSNESS [None]
  - TREMOR [None]
